FAERS Safety Report 5738875-6 (Version None)
Quarter: 2008Q2

REPORT INFORMATION
  Report Type: 
  Country: None (occurrence: None)
  Receive Date: 20080515
  Receipt Date: 20080513
  Transmission Date: 20081010
  Serious: Yes (Death, Other)
  Sender: FDA-Public Use
  Company Number: US-RB-001132-08

PATIENT

DRUGS (1)
  1. SUBOXONE [Suspect]
     Indication: DRUG USE FOR UNKNOWN INDICATION
     Dosage: UNKNOWN DOSAGE
     Route: 060

REACTIONS (1)
  - COMPLETED SUICIDE [None]
